FAERS Safety Report 6100483-5 (Version None)
Quarter: 2009Q1

REPORT INFORMATION
  Report Type: 
  Country: None (occurrence: None)
  Receive Date: 20090227
  Receipt Date: 20090227
  Transmission Date: 20090719
  Serious: No
  Sender: FDA-Public Use
  Company Number: None

PATIENT
  Sex: Female
  Weight: 60.91 kg

DRUGS (10)
  1. LISINOPRIL [Suspect]
     Dosage: 5 MG TABLET QD ORAL
     Route: 048
     Dates: start: 20080924, end: 20090226
  2. ACTONEL [Concomitant]
  3. ATENOLOL [Concomitant]
  4. ATIVAN [Concomitant]
  5. GLIPIZIDE [Concomitant]
  6. HYDROCHLOROTHIAZIDE [Concomitant]
  7. K-DUR [Concomitant]
  8. LEVOTHYROXINE SODIUM [Concomitant]
  9. PREMARIN [Concomitant]
  10. SIMVASTATIN [Concomitant]

REACTIONS (1)
  - COUGH [None]
